FAERS Safety Report 9610954 (Version 1)
Quarter: 2013Q4

REPORT INFORMATION
  Report Type: Report from Study
  Country: US (occurrence: US)
  Receive Date: 20131009
  Receipt Date: 20131009
  Transmission Date: 20140711
  Serious: Yes (Hospitalization)
  Sender: FDA-Public Use
  Company Number: PHEH2013US021000

PATIENT
  Age: 82 Year
  Sex: Female

DRUGS (1)
  1. TOBRAMYCIN [Suspect]
     Indication: CHRONIC OBSTRUCTIVE PULMONARY DISEASE
     Dosage: 300 MG, Q12H
     Dates: start: 201207

REACTIONS (3)
  - Chronic obstructive pulmonary disease [Unknown]
  - Glossodynia [Unknown]
  - Dizziness [Unknown]
